FAERS Safety Report 16823923 (Version 1)
Quarter: 2019Q3

REPORT INFORMATION
  Report Type: Report from Study
  Country: GB (occurrence: GB)
  Receive Date: 20190918
  Receipt Date: 20190918
  Transmission Date: 20191005
  Serious: Yes (Other)
  Sender: FDA-Public Use
  Company Number: GB-SAMSUNG BIOEPIS-SB-2019-27049

PATIENT
  Sex: Female

DRUGS (1)
  1. IMRALDI [Suspect]
     Active Substance: ADALIMUMAB
     Indication: ANKYLOSING SPONDYLITIS
     Route: 058
     Dates: start: 20190529

REACTIONS (12)
  - Wound infection [Recovering/Resolving]
  - Rhinitis [Recovering/Resolving]
  - Malaise [Unknown]
  - Dehydration [Unknown]
  - Blood iron decreased [Unknown]
  - Pain [Unknown]
  - Fatigue [Unknown]
  - Nausea [Unknown]
  - Urinary tract infection [Recovering/Resolving]
  - Weight decreased [Unknown]
  - Headache [Unknown]
  - Hyperhidrosis [Unknown]
